FAERS Safety Report 7469115-8 (Version None)
Quarter: 2011Q2

REPORT INFORMATION
  Report Type: 
  Country: None (occurrence: None)
  Receive Date: 20110510
  Receipt Date: 20110426
  Transmission Date: 20111010
  Serious: No
  Sender: FDA-Public Use
  Company Number: US-ELI_LILLY_AND_COMPANY-US201104007194

PATIENT
  Age: 82 Year
  Sex: Female

DRUGS (1)
  1. CYMBALTA [Suspect]
     Indication: MOOD ALTERED
     Dosage: 20 MG, UNK
     Dates: start: 20110201

REACTIONS (2)
  - OFF LABEL USE [None]
  - HEPATIC ENZYME INCREASED [None]
